FAERS Safety Report 10438936 (Version 1)
Quarter: 2014Q3

REPORT INFORMATION
  Report Type: Spontaneous
  Country: DE (occurrence: None)
  Receive Date: 20140904
  Receipt Date: 20140904
  Transmission Date: 20150326
  Serious: Yes (Other)
  Sender: FDA-Public Use
  Company Number: IMP_07880_2014

PATIENT
  Age: 40 Year
  Sex: Male

DRUGS (2)
  1. METFORMIN [Suspect]
     Active Substance: METFORMIN HYDROCHLORIDE
     Indication: PRODUCT USED FOR UNKNOWN INDICATION
     Route: 048
  2. ALCOHOL (ALCOHOL) [Suspect]
     Active Substance: ALCOHOL
     Dosage: DF
     Route: 048

REACTIONS (4)
  - Intentional overdose [None]
  - Metabolic acidosis [None]
  - Suicide attempt [None]
  - Haemodialysis [None]
